FAERS Safety Report 17818143 (Version 1)
Quarter: 2020Q2

REPORT INFORMATION
  Report Type: Spontaneous
  Country: FR (occurrence: FR)
  Receive Date: 20200522
  Receipt Date: 20200522
  Transmission Date: 20200714
  Serious: Yes (Hospitalization)
  Sender: FDA-Public Use
  Company Number: FR-ELI_LILLY_AND_COMPANY-FR202005005557

PATIENT
  Age: 60 Year
  Sex: Female
  Weight: 57 kg

DRUGS (18)
  1. ALIMTA [Suspect]
     Active Substance: PEMETREXED DISODIUM
     Dosage: 800 MG, CYCLICAL
     Route: 042
     Dates: start: 20200410
  2. CORTANCYL [Concomitant]
     Active Substance: PREDNISONE
     Dosage: 40 MG, MORNING
     Dates: start: 20200502, end: 20200504
  3. ALIMTA [Suspect]
     Active Substance: PEMETREXED DISODIUM
     Dosage: 800 MG, CYCLICAL
     Route: 042
     Dates: start: 20200410
  4. THERALENE [Concomitant]
     Active Substance: TRIMEPRAZINE
     Dosage: UNK, DROPS IN THE EVENING
  5. NICOPATCH [Concomitant]
     Active Substance: NICOTINE
     Dosage: 1 DOSAGE FORM, DAILY
  6. ZOPICLONE [Concomitant]
     Active Substance: ZOPICLONE
     Dosage: UNK, IN THE EVENING
  7. ZOPHREN [ONDANSETRON] [Concomitant]
     Active Substance: ONDANSETRON
     Dosage: 8 MG, 1 TABLET MORNING AND EVENING
  8. CARBOPLATIN ACCORD [Suspect]
     Active Substance: CARBOPLATIN
     Dosage: 345 MG, CYCLICAL
     Route: 042
     Dates: start: 20200430, end: 20200430
  9. DAFALGAN [Concomitant]
     Active Substance: ACETAMINOPHEN
     Dosage: 1000 MG, EVERY SIX HOURS,  IF NECESSARY
  10. ALIMTA [Suspect]
     Active Substance: PEMETREXED DISODIUM
     Dosage: 800 MG, CYCLICAL
     Route: 042
     Dates: start: 20200430
  11. BILASKA [Concomitant]
     Active Substance: BILASTINE
     Dosage: UNK, DAILY
  12. CARBOPLATIN ACCORD [Suspect]
     Active Substance: CARBOPLATIN
     Indication: LUNG ADENOCARCINOMA
     Dosage: 580 MG, CYCLICAL
     Route: 042
     Dates: start: 20200410, end: 20200410
  13. FOLIC ACID. [Concomitant]
     Active Substance: FOLIC ACID
     Dosage: UNK UNK, DAILY
  14. CORTANCYL [Concomitant]
     Active Substance: PREDNISONE
     Dosage: 20 MG, MORNING AND EVENING, THE DAY AFTER CHEMOTHERAPY
     Dates: start: 20200501
  15. ALIMTA [Suspect]
     Active Substance: PEMETREXED DISODIUM
     Indication: LUNG ADENOCARCINOMA
     Dosage: 800 MG, CYCLICAL
     Route: 042
     Dates: start: 20200410
  16. ZARZIO [Suspect]
     Active Substance: FILGRASTIM
     Indication: COLONY STIMULATING FACTOR THERAPY
     Dosage: UNK UNK, DAILY
     Route: 058
     Dates: start: 20200421, end: 20200426
  17. XANAX [Concomitant]
     Active Substance: ALPRAZOLAM
     Dosage: 0.25 MG, DAILY, IF NECESSARY
  18. VENLAFAXINE [Concomitant]
     Active Substance: VENLAFAXINE HYDROCHLORIDE
     Dosage: 75 MG, DAILY

REACTIONS (9)
  - Pancytopenia [Recovering/Resolving]
  - Acute kidney injury [Recovered/Resolved]
  - Dyspnoea [Recovered/Resolved]
  - Cough [Recovered/Resolved]
  - Off label use [Unknown]
  - Metabolic acidosis [Recovering/Resolving]
  - Wheezing [Unknown]
  - Diarrhoea [Recovering/Resolving]
  - Rash maculo-papular [Recovering/Resolving]

NARRATIVE: CASE EVENT DATE: 20200428
